FAERS Safety Report 12115338 (Version 1)
Quarter: 2016Q1

REPORT INFORMATION
  Report Type: Spontaneous
  Country: FR (occurrence: FR)
  Receive Date: 20160225
  Receipt Date: 20160225
  Transmission Date: 20160526
  Serious: Yes (Other)
  Sender: FDA-Public Use
  Company Number: FR-TEVA-638311ISR

PATIENT
  Age: 82 Year
  Sex: Male

DRUGS (11)
  1. FLUCONAZOLE KABI [Interacting]
     Active Substance: FLUCONAZOLE
     Indication: ORAL FUNGAL INFECTION
     Dosage: 400 MILLIGRAM DAILY;
     Route: 042
     Dates: start: 20151126, end: 20151201
  2. PAROXETINE ARROW 20 MG [Concomitant]
  3. TRISENOX [Suspect]
     Active Substance: ARSENIC TRIOXIDE
     Indication: ACUTE MYELOID LEUKAEMIA
     Dosage: 11.5 MILLIGRAM DAILY; INJECTION FOR 5 DAYS THEN 2 DAYS OFF
     Route: 042
     Dates: start: 20151113
  4. ELUDRILPERIO 0.2% [Concomitant]
  5. AUGMENTIN [Concomitant]
     Active Substance: AMOXICILLIN\CLAVULANATE POTASSIUM
     Indication: LUNG DISORDER
     Dates: start: 20151123, end: 20151129
  6. ZARZIO 30 MU/0.5 ML [Concomitant]
     Active Substance: FILGRASTIM
  7. LANTUS SOLOSTAR [Concomitant]
     Active Substance: INSULIN GLARGINE
  8. ENALAPRIL EG 20 MG [Concomitant]
  9. PANTOPRAZOLE ARROW 40 MG [Concomitant]
     Dosage: GASTRO-RESISTANT TABLET
  10. LERCANIDIPINE (CHLORHYDRATE DE) [Concomitant]
  11. KARDEGIC [Concomitant]
     Active Substance: ASPIRIN LYSINE

REACTIONS (2)
  - Electrocardiogram QT prolonged [Recovered/Resolved]
  - Drug interaction [Recovered/Resolved]

NARRATIVE: CASE EVENT DATE: 20151201
